FAERS Safety Report 9288215 (Version 2)
Quarter: 2013Q2

REPORT INFORMATION
  Report Type: Spontaneous
  Country: US (occurrence: US)
  Receive Date: 20130514
  Receipt Date: 20130624
  Transmission Date: 20140414
  Serious: Yes (Other)
  Sender: FDA-Public Use
  Company Number: US-JNJFOC-20130503284

PATIENT
  Age: 54 Year
  Sex: Female
  Weight: 102.06 kg

DRUGS (9)
  1. REMICADE [Suspect]
     Indication: PSORIATIC ARTHROPATHY
     Dosage: 500 MG IN 250 ML SODIUM CHLORIDE
     Route: 042
     Dates: start: 20121105
  2. REMICADE [Suspect]
     Indication: PSORIATIC ARTHROPATHY
     Dosage: FREQUENCY APPROXIMATELY EVERY 6 WEEKS
     Route: 042
     Dates: start: 201304
  3. TYLENOL [Suspect]
     Route: 048
  4. TYLENOL [Suspect]
     Indication: PREMEDICATION
     Route: 048
     Dates: start: 20121105
  5. METHOTREXATE [Suspect]
     Indication: PRODUCT USED FOR UNKNOWN INDICATION
     Dosage: ON HOLD SINCE JAN (YEAR UNSPECIFIED)
     Route: 065
  6. SOLU MEDROL [Concomitant]
     Indication: PREMEDICATION
     Route: 042
  7. BENADRYL [Concomitant]
     Indication: PREMEDICATION
     Route: 042
  8. SOLU MEDROL [Concomitant]
     Route: 065
  9. PREDNISONE [Concomitant]
     Route: 065

REACTIONS (2)
  - Hepatic enzyme increased [Not Recovered/Not Resolved]
  - Weight decreased [Unknown]
